FAERS Safety Report 7045753-1 (Version None)
Quarter: 2010Q4

REPORT INFORMATION
  Report Type: 
  Country: None (occurrence: None)
  Receive Date: 20101014
  Receipt Date: 20101005
  Transmission Date: 20110411
  Serious: No
  Sender: FDA-Public Use
  Company Number: JP-ASTRAZENECA-2010SE01474

PATIENT
  Age: 25279 Day
  Sex: Female
  Weight: 59 kg

DRUGS (2)
  1. CRESTOR [Suspect]
     Indication: HYPERCHOLESTEROLAEMIA
     Route: 048
     Dates: start: 20071126, end: 20091224
  2. CRESTOR [Suspect]
     Route: 048
     Dates: start: 20100118

REACTIONS (2)
  - DERMATITIS EXFOLIATIVE [None]
  - URTICARIA [None]
